FAERS Safety Report 11737569 (Version 1)
Quarter: 2015Q4

REPORT INFORMATION
  Report Type: Spontaneous
  Country: US (occurrence: None)
  Receive Date: 20151112
  Receipt Date: 20151112
  Transmission Date: 20160304
  Serious: Yes (Disabling)
  Sender: FDA-Public Use
  Company Number: None

PATIENT
  Age: 46 Year
  Sex: Male
  Weight: 65.77 kg

DRUGS (10)
  1. RETIN A (TRETINOIN) [Concomitant]
  2. DAILY MULTI-VITAMIN [Concomitant]
  3. VALTREX (VALACYCLOVIR HCL) [Concomitant]
  4. ACANYA GEL, (CLINDAMYCIN PHOSPHATE/BENZOYL PEROXIDE) [Concomitant]
  5. FINASTERIDE. [Concomitant]
     Active Substance: FINASTERIDE
  6. FISH OIL [Concomitant]
     Active Substance: FISH OIL
  7. MELOXICAM. [Suspect]
     Active Substance: MELOXICAM
     Indication: PLANTAR FASCIITIS
     Dosage: 1 PILL
     Route: 048
     Dates: start: 20150720, end: 20151010
  8. BABY ASPIRN (81MG) [Concomitant]
  9. VITAMIN C [Concomitant]
     Active Substance: ASCORBIC ACID
  10. GLUCOSAMINE HCL WITH MSM [Concomitant]

REACTIONS (4)
  - Aspartate aminotransferase increased [None]
  - Hepatic function abnormal [None]
  - Blood bilirubin increased [None]
  - Alanine aminotransferase increased [None]

NARRATIVE: CASE EVENT DATE: 20151013
